FAERS Safety Report 8732747 (Version 2)
Quarter: 2012Q4

REPORT INFORMATION
  Report Type: Report from Study
  Country: DE (occurrence: DE)
  Receive Date: 20120820
  Receipt Date: 20121123
  Transmission Date: 20130627
  Serious: Yes (Death, Hospitalization)
  Sender: FDA-Public Use
  Company Number: DE-ROCHE-728776

PATIENT
  Age: 75 Year
  Sex: Female
  Weight: 71 kg

DRUGS (22)
  1. BEVACIZUMAB [Suspect]
     Indication: COLORECTAL CANCER METASTATIC
     Route: 042
  2. BEVACIZUMAB [Suspect]
     Route: 042
     Dates: start: 20110110, end: 201107
  3. BEVACIZUMAB [Suspect]
     Route: 042
     Dates: start: 201109, end: 20120214
  4. IRINOTECAN [Suspect]
     Indication: COLORECTAL CANCER METASTATIC
     Route: 042
  5. 5-FU [Suspect]
     Indication: COLORECTAL CANCER METASTATIC
     Route: 042
  6. 5-FU [Suspect]
     Route: 042
     Dates: start: 20110110, end: 20120214
  7. 5-FU [Suspect]
     Route: 042
  8. 5-FU [Suspect]
     Route: 042
     Dates: start: 200712, end: 200802
  9. FOLINIC ACID [Suspect]
     Indication: COLORECTAL CANCER METASTATIC
     Route: 042
  10. FOLINIC ACID [Suspect]
     Route: 042
     Dates: start: 20110110, end: 20120214
  11. FALITHROM [Concomitant]
     Route: 065
  12. BELOC-ZOK MITE [Concomitant]
     Route: 065
  13. BICANORM [Concomitant]
     Route: 065
  14. RENAGEL [Concomitant]
     Route: 065
  15. AMLODIPIN [Concomitant]
     Route: 065
  16. BEROTEC [Concomitant]
     Route: 065
  17. NOVALGIN [Concomitant]
     Dosage: 30 drops
     Route: 065
  18. FENTANYL [Concomitant]
     Dosage: 1 patch
     Route: 065
  19. MOVICOL [Concomitant]
     Dosage: 1 sachet per day
     Route: 065
  20. TOREM [Concomitant]
     Route: 065
  21. CLEXANE [Concomitant]
     Route: 058
  22. EFFENTORA [Concomitant]
     Route: 065

REACTIONS (8)
  - Death [Fatal]
  - Diarrhoea [Recovered/Resolved]
  - Diarrhoea [Recovered/Resolved]
  - Dyspnoea [Recovering/Resolving]
  - Cardiac failure [Recovering/Resolving]
  - Pleural effusion [Recovering/Resolving]
  - Pulmonary embolism [Recovering/Resolving]
  - Hyperkalaemia [Recovered/Resolved]
